FAERS Safety Report 25140906 (Version 7)
Quarter: 2025Q4

REPORT INFORMATION
  Report Type: Spontaneous
  Country: EU (occurrence: EU)
  Receive Date: 20250331
  Receipt Date: 20251111
  Transmission Date: 20260118
  Serious: Yes (Life-Threatening, Hospitalization)
  Sender: MYLAN
  Company Number: None

PATIENT
  Age: 52 Year
  Sex: Male
  Weight: 58.4 kg

DRUGS (28)
  1. METFORMIN [Suspect]
     Active Substance: METFORMIN HYDROCHLORIDE
     Indication: Type 2 diabetes mellitus
     Dosage: 2800 MILLIGRAM, QD
     Dates: start: 20241230, end: 20241230
  2. METFORMIN [Suspect]
     Active Substance: METFORMIN HYDROCHLORIDE
     Dosage: 2800 MILLIGRAM, QD
     Route: 048
     Dates: start: 20241230, end: 20241230
  3. METFORMIN [Suspect]
     Active Substance: METFORMIN HYDROCHLORIDE
     Dosage: 2800 MILLIGRAM, QD
     Route: 048
     Dates: start: 20241230, end: 20241230
  4. METFORMIN [Suspect]
     Active Substance: METFORMIN HYDROCHLORIDE
     Dosage: 2800 MILLIGRAM, QD
     Dates: start: 20241230, end: 20241230
  5. VILDAGLIPTIN [Suspect]
     Active Substance: VILDAGLIPTIN
     Indication: Type 2 diabetes mellitus
     Dosage: 100 MILLIGRAM, QD
     Dates: start: 20241217, end: 20241230
  6. VILDAGLIPTIN [Suspect]
     Active Substance: VILDAGLIPTIN
     Dosage: 100 MILLIGRAM, QD
     Route: 048
     Dates: start: 20241217, end: 20241230
  7. VILDAGLIPTIN [Suspect]
     Active Substance: VILDAGLIPTIN
     Dosage: 100 MILLIGRAM, QD
     Route: 048
     Dates: start: 20241217, end: 20241230
  8. VILDAGLIPTIN [Suspect]
     Active Substance: VILDAGLIPTIN
     Dosage: 100 MILLIGRAM, QD
     Dates: start: 20241217, end: 20241230
  9. TRAMADOL [Suspect]
     Active Substance: TRAMADOL
     Indication: Pain
     Dosage: 200 MILLIGRAM, QD
     Dates: start: 20241217, end: 20241230
  10. TRAMADOL [Suspect]
     Active Substance: TRAMADOL
     Dosage: 200 MILLIGRAM, QD
     Route: 048
     Dates: start: 20241217, end: 20241230
  11. TRAMADOL [Suspect]
     Active Substance: TRAMADOL
     Dosage: 200 MILLIGRAM, QD
     Route: 048
     Dates: start: 20241217, end: 20241230
  12. TRAMADOL [Suspect]
     Active Substance: TRAMADOL
     Dosage: 200 MILLIGRAM, QD
     Dates: start: 20241217, end: 20241230
  13. PIPERACILLIN SODIUM\TAZOBACTAM SODIUM [Suspect]
     Active Substance: PIPERACILLIN SODIUM\TAZOBACTAM SODIUM
     Indication: Pyelonephritis
     Dosage: 12 GRAM, QD
     Dates: start: 20241211, end: 20241225
  14. PIPERACILLIN SODIUM\TAZOBACTAM SODIUM [Suspect]
     Active Substance: PIPERACILLIN SODIUM\TAZOBACTAM SODIUM
     Dosage: 12 GRAM, QD
     Route: 042
     Dates: start: 20241211, end: 20241225
  15. PIPERACILLIN SODIUM\TAZOBACTAM SODIUM [Suspect]
     Active Substance: PIPERACILLIN SODIUM\TAZOBACTAM SODIUM
     Dosage: 12 GRAM, QD
     Route: 042
     Dates: start: 20241211, end: 20241225
  16. PIPERACILLIN SODIUM\TAZOBACTAM SODIUM [Suspect]
     Active Substance: PIPERACILLIN SODIUM\TAZOBACTAM SODIUM
     Dosage: 12 GRAM, QD
     Dates: start: 20241211, end: 20241225
  17. OMNIPAQUE [Suspect]
     Active Substance: IOHEXOL
     Indication: Computerised tomogram
     Dosage: 70 MILLILITER 1, TOTAL (350 MG I/ML)
     Dates: start: 20241215, end: 20241215
  18. OMNIPAQUE [Suspect]
     Active Substance: IOHEXOL
     Dosage: 70 MILLILITER 1, TOTAL (350 MG I/ML)
     Route: 042
     Dates: start: 20241215, end: 20241215
  19. OMNIPAQUE [Suspect]
     Active Substance: IOHEXOL
     Dosage: 70 MILLILITER 1, TOTAL (350 MG I/ML)
     Route: 042
     Dates: start: 20241215, end: 20241215
  20. OMNIPAQUE [Suspect]
     Active Substance: IOHEXOL
     Dosage: 70 MILLILITER 1, TOTAL (350 MG I/ML)
     Dates: start: 20241215, end: 20241215
  21. TINZAPARIN SODIUM [Concomitant]
     Active Substance: TINZAPARIN SODIUM
     Indication: Product used for unknown indication
     Dosage: UNK
  22. TINZAPARIN SODIUM [Concomitant]
     Active Substance: TINZAPARIN SODIUM
     Dosage: UNK
     Route: 065
  23. TINZAPARIN SODIUM [Concomitant]
     Active Substance: TINZAPARIN SODIUM
     Dosage: UNK
     Route: 065
  24. TINZAPARIN SODIUM [Concomitant]
     Active Substance: TINZAPARIN SODIUM
     Dosage: UNK
  25. AMLODIPINE [Concomitant]
     Active Substance: AMLODIPINE BESYLATE
     Indication: Product used for unknown indication
     Dosage: UNK
  26. AMLODIPINE [Concomitant]
     Active Substance: AMLODIPINE BESYLATE
     Dosage: UNK
     Route: 065
  27. AMLODIPINE [Concomitant]
     Active Substance: AMLODIPINE BESYLATE
     Dosage: UNK
     Route: 065
  28. AMLODIPINE [Concomitant]
     Active Substance: AMLODIPINE BESYLATE
     Dosage: UNK

REACTIONS (2)
  - Renal failure [Recovering/Resolving]
  - Diarrhoea [Recovered/Resolved]

NARRATIVE: CASE EVENT DATE: 20241218
